FAERS Safety Report 5215097-9 (Version None)
Quarter: 2006Q4

REPORT INFORMATION
  Report Type: 
  Country: None (occurrence: None)
  Receive Date: 20061107
  Receipt Date: 20060714
  Transmission Date: 20070319
  Serious: No
  Sender: FDA-Public Use
  Company Number: 200614589BWH

PATIENT
  Age: 59 Year
  Sex: Male

DRUGS (9)
  1. LEVITRA [Suspect]
     Indication: ERECTILE DYSFUNCTION
     Dosage: SEE IMAGE
     Route: 048
     Dates: start: 20060702
  2. LEVITRA [Suspect]
     Indication: ERECTILE DYSFUNCTION
     Dosage: SEE IMAGE
     Route: 048
     Dates: start: 20060707
  3. GLUCOPHAGE [Concomitant]
  4. BUMET [Concomitant]
  5. ASCORBIC ACID [Concomitant]
  6. ALEVE [Concomitant]
  7. ASPIRIN [Concomitant]
  8. AMARYL [Concomitant]
  9. ZESYNL [Concomitant]

REACTIONS (1)
  - ERECTILE DYSFUNCTION [None]
